FAERS Safety Report 10802790 (Version 3)
Quarter: 2016Q3

REPORT INFORMATION
  Report Type: Spontaneous
  Country: US (occurrence: US)
  Receive Date: 20150217
  Receipt Date: 20160916
  Transmission Date: 20161109
  Serious: Yes (Death)
  Sender: FDA-Public Use
  Company Number: US-SA-2015SA018495

PATIENT
  Age: 39 Year
  Sex: Male
  Weight: 90.7 kg

DRUGS (1)
  1. AMBIEN [Suspect]
     Active Substance: ZOLPIDEM TARTRATE
     Indication: SLEEP DISORDER
     Dosage: STRENGTH 162 MG/ML
     Route: 065
     Dates: end: 20141014

REACTIONS (3)
  - Alcohol interaction [Fatal]
  - Labelled drug-drug interaction medication error [Unknown]
  - Completed suicide [Fatal]
